FAERS Safety Report 8064173-4 (Version None)
Quarter: 2012Q1

REPORT INFORMATION
  Report Type: 
  Country: None (occurrence: None)
  Receive Date: 20120123
  Receipt Date: 20120116
  Transmission Date: 20120608
  Serious: Yes (Other)
  Sender: FDA-Public Use
  Company Number: US-TEVA-318220USA

PATIENT
  Age: 57 Year
  Sex: Male

DRUGS (3)
  1. LEVOFLOXACIN [Suspect]
     Indication: GRAFT VERSUS HOST DISEASE
  2. METRONIDAZOLE [Suspect]
     Indication: DIARRHOEA
  3. METRONIDAZOLE [Suspect]
     Indication: GRAFT VERSUS HOST DISEASE

REACTIONS (1)
  - MANIA [None]
